FAERS Safety Report 14665543 (Version 2)
Quarter: 2019Q4

REPORT INFORMATION
  Report Type: Spontaneous
  Country: GB (occurrence: GB)
  Receive Date: 20180321
  Receipt Date: 20191121
  Transmission Date: 20200122
  Serious: Yes (Hospitalization, Other)
  Sender: FDA-Public Use
  Company Number: GB-TEVA-2018-GB-870489

PATIENT
  Age: 51 Year
  Sex: Female
  Weight: 53.52 kg

DRUGS (2)
  1. TAMOXIFEN CITRATE. [Suspect]
     Active Substance: TAMOXIFEN CITRATE
     Indication: BREAST CANCER
     Route: 048
     Dates: start: 20161128, end: 20181119
  2. DIAZEPAM. [Concomitant]
     Active Substance: DIAZEPAM
     Dosage: OCCASIONAL USE

REACTIONS (6)
  - Endometrial thickening [Recovering/Resolving]
  - Abdominal pain lower [Recovering/Resolving]
  - Ovarian cyst [Recovering/Resolving]
  - Stress urinary incontinence [Recovering/Resolving]
  - Uterine leiomyoma [Recovering/Resolving]
  - Urge incontinence [Recovering/Resolving]

NARRATIVE: CASE EVENT DATE: 20170106
